FAERS Safety Report 9397110 (Version 1)
Quarter: 2013Q3

REPORT INFORMATION
  Report Type: Spontaneous
  Country: US (occurrence: US)
  Receive Date: 20130712
  Receipt Date: 20130712
  Transmission Date: 20140515
  Serious: No
  Sender: FDA-Public Use
  Company Number: US-PFIZER INC-2013205091

PATIENT
  Sex: Male

DRUGS (2)
  1. LYRICA [Suspect]
     Dosage: 75 MG, DAILY
  2. LYRICA [Suspect]
     Dosage: UNK (TAKING HALF OF 75 MG CAPSULE), 1X/DAY

REACTIONS (6)
  - Drug intolerance [Unknown]
  - Somnolence [Unknown]
  - Fatigue [Unknown]
  - Activities of daily living impaired [Unknown]
  - Memory impairment [Unknown]
  - Intentional drug misuse [Unknown]
